FAERS Safety Report 16863188 (Version 1)
Quarter: 2019Q3

REPORT INFORMATION
  Report Type: Report from Study
  Country: US (occurrence: US)
  Receive Date: 20190927
  Receipt Date: 20190927
  Transmission Date: 20191005
  Serious: Yes (Other)
  Sender: FDA-Public Use
  Company Number: US-THERAPEUTICSMD-2019TMD03243

PATIENT
  Age: 84 Year
  Sex: Female

DRUGS (1)
  1. IMVEXXY [Suspect]
     Active Substance: ESTRADIOL
     Dosage: 10 ?G
     Route: 067

REACTIONS (2)
  - Myocardial infarction [Unknown]
  - Surgery [Unknown]

NARRATIVE: CASE EVENT DATE: 20190912
